FAERS Safety Report 8297349-1 (Version None)
Quarter: 2012Q2

REPORT INFORMATION
  Report Type: 
  Country: None (occurrence: None)
  Receive Date: 20120419
  Receipt Date: 20120405
  Transmission Date: 20120825
  Serious: Yes (Other)
  Sender: FDA-Public Use
  Company Number: US-SHIONOGI, INC-2012000134

PATIENT
  Age: 5 Year
  Sex: Male

DRUGS (2)
  1. CLONIDINE [Concomitant]
     Dosage: 0.5 MG
  2. KAPVAY [Suspect]
     Dosage: 0.1 MG, EVERY NIGHT
     Dates: start: 20120403

REACTIONS (4)
  - NIGHT SWEATS [None]
  - ENURESIS [None]
  - HEART RATE INCREASED [None]
  - PALPITATIONS [None]
